FAERS Safety Report 8346282-5 (Version None)
Quarter: 2012Q2

REPORT INFORMATION
  Report Type: 
  Country: None (occurrence: None)
  Receive Date: 20120509
  Receipt Date: 20120217
  Transmission Date: 20120825
  Serious: No
  Sender: FDA-Public Use
  Company Number: US-COVIDIEN/TYCO HEALTHCARE/MALLINCKRODT-T201200518

PATIENT
  Sex: Male

DRUGS (7)
  1. TAMSULOSIN HCL [Concomitant]
     Indication: BLOOD PRESSURE
     Dosage: UNK
  2. CRESTOR [Concomitant]
     Indication: BLOOD CHOLESTEROL
     Dosage: UNK
  3. ASPIRIN [Concomitant]
     Indication: PROPHYLAXIS
     Dosage: 81 MG, UNK
  4. OMEPRAZOLE [Concomitant]
     Dosage: UNK
  5. TRANDOLAPRIL/VERAPAMIL [Concomitant]
     Indication: BLOOD PRESSURE
     Dosage: UNK
  6. PENNSAID [Suspect]
     Indication: GOUT
     Dosage: 10 GTT, QID
     Route: 061
     Dates: start: 20111218, end: 20111228
  7. FISH OIL [Concomitant]
     Indication: SUPPLEMENTATION THERAPY
     Dosage: UNK

REACTIONS (2)
  - SKIN EXFOLIATION [None]
  - GOUT [None]
